FAERS Safety Report 4378766-9 (Version None)
Quarter: 2004Q2

REPORT INFORMATION
  Report Type: 
  Country: None (occurrence: None)
  Receive Date: 20040609
  Receipt Date: 20040526
  Transmission Date: 20050107
  Serious: Yes (Death)
  Sender: FDA-Public Use
  Company Number: US_0406103381

PATIENT
  Sex: Female

DRUGS (1)
  1. ZYPREXA [Suspect]

REACTIONS (10)
  - BALANCE DISORDER [None]
  - DYSARTHRIA [None]
  - HYPOVENTILATION [None]
  - IMPRISONMENT [None]
  - INCOHERENT [None]
  - KETOACIDOSIS [None]
  - LETHARGY [None]
  - LOSS OF CONSCIOUSNESS [None]
  - PULMONARY OEDEMA [None]
  - REFUSAL OF TREATMENT BY PATIENT [None]
